FAERS Safety Report 17778041 (Version 3)
Quarter: 2020Q2

REPORT INFORMATION
  Report Type: Spontaneous
  Country: CA (occurrence: CA)
  Receive Date: 20200513
  Receipt Date: 20200624
  Transmission Date: 20200714
  Serious: Yes (Other)
  Sender: FDA-Public Use
  Company Number: CA-PFIZER INC-2019535205

PATIENT
  Age: 83 Year
  Sex: Female

DRUGS (2)
  1. CORTISONE [Concomitant]
     Active Substance: CORTISONE
     Indication: RHEUMATOID ARTHRITIS
     Dosage: UNK
     Route: 065
  2. XELJANZ XR [Suspect]
     Active Substance: TOFACITINIB CITRATE
     Indication: RHEUMATOID ARTHRITIS
     Dosage: 11 MG, 1X/DAY
     Route: 048
     Dates: start: 2020, end: 2020

REACTIONS (7)
  - Alopecia [Unknown]
  - Exposure to communicable disease [Unknown]
  - Visual impairment [Unknown]
  - Fall [Unknown]
  - Rib fracture [Unknown]
  - Eye disorder [Not Recovered/Not Resolved]
  - Visual brightness [Unknown]
